FAERS Safety Report 5729255-8 (Version None)
Quarter: 2008Q2

REPORT INFORMATION
  Report Type: 
  Country: None (occurrence: None)
  Receive Date: 20080506
  Receipt Date: 20080428
  Transmission Date: 20081010
  Serious: Yes (Other)
  Sender: FDA-Public Use
  Company Number: SE-JNJFOC-20080407685

PATIENT
  Age: 46 Year
  Sex: Male

DRUGS (5)
  1. REMICADE [Suspect]
     Route: 042
  2. REMICADE [Suspect]
     Dosage: 4TH INFUSION
     Route: 042
  3. REMICADE [Suspect]
     Indication: CROHN'S DISEASE
     Dosage: 3 INFUSIONS ON UNSPECIFIED DATES
     Route: 042
  4. AZATHIOPRINE [Concomitant]
     Dosage: REDUCED TO ^A LOW DOSE^
  5. AZATHIOPRINE [Concomitant]
     Dosage: ^HIGH DOSE^

REACTIONS (5)
  - ARTHRALGIA [None]
  - MYALGIA [None]
  - NEUROPATHY PERIPHERAL [None]
  - NONSPECIFIC REACTION [None]
  - PARAESTHESIA [None]
